FAERS Safety Report 6298081-6 (Version None)
Quarter: 2009Q3

REPORT INFORMATION
  Report Type: 
  Country: None (occurrence: None)
  Receive Date: 20090805
  Receipt Date: 20090727
  Transmission Date: 20100115
  Serious: Yes (Other)
  Sender: FDA-Public Use
  Company Number: ES-JNJFOC-20090709998

PATIENT
  Age: 53 Year
  Sex: Female

DRUGS (13)
  1. REMICADE [Suspect]
     Route: 042
  2. REMICADE [Suspect]
     Indication: SPONDYLOARTHROPATHY
     Route: 042
  3. REMICADE [Suspect]
     Indication: PSORIATIC ARTHROPATHY
     Route: 042
  4. GLUCOCORTICOIDS [Concomitant]
  5. METHOTREXATE [Concomitant]
  6. NSAID'S [Concomitant]
  7. FOLIC ACID [Concomitant]
  8. OMEPRAZOLE [Concomitant]
  9. CALCIUM [Concomitant]
  10. VITAMIN D [Concomitant]
  11. BENZODIAZEPINES NOS [Concomitant]
  12. PREDNISONE TAB [Concomitant]
  13. LOSARTAN POTASSIUM [Concomitant]

REACTIONS (2)
  - SURGERY [None]
  - TUBERCULOSIS [None]
